FAERS Safety Report 7407235-4 (Version None)
Quarter: 2011Q2

REPORT INFORMATION
  Report Type: 
  Country: None (occurrence: None)
  Receive Date: 20110411
  Receipt Date: 20110321
  Transmission Date: 20111010
  Serious: No
  Sender: FDA-Public Use
  Company Number: US-B.I. PHARMACEUTICALS,INC./RIDGEFIELD-2011-BP-08916BP

PATIENT
  Age: 76 Year
  Sex: Female

DRUGS (3)
  1. LEVOXYL [Concomitant]
  2. ZANTAC 150 [Suspect]
  3. ZANTAC 150 [Suspect]
     Indication: DYSPEPSIA
     Dosage: 150 MG
     Route: 048
     Dates: start: 20110201, end: 20110201

REACTIONS (1)
  - DRUG INEFFECTIVE [None]
